FAERS Safety Report 14606855 (Version 3)
Quarter: 2018Q1

REPORT INFORMATION
  Report Type: Spontaneous
  Country: JP (occurrence: JP)
  Receive Date: 20180307
  Receipt Date: 20180322
  Transmission Date: 20180509
  Serious: Yes (Hospitalization, Other)
  Sender: FDA-Public Use
  Company Number: JP-ROCHE-2086291

PATIENT
  Age: 81 Year
  Sex: Male
  Weight: 55 kg

DRUGS (4)
  1. ACTEMRA [Suspect]
     Active Substance: TOCILIZUMAB
     Indication: JOINT SWELLING
  2. ACTEMRA [Suspect]
     Active Substance: TOCILIZUMAB
     Indication: C-REACTIVE PROTEIN INCREASED
  3. ACTEMRA [Suspect]
     Active Substance: TOCILIZUMAB
     Indication: RHEUMATOID ARTHRITIS
     Dosage: MOST RRECET DOSE ADMINISTERED IN FEB/2015
     Route: 041
     Dates: start: 201412
  4. ACTEMRA [Suspect]
     Active Substance: TOCILIZUMAB
     Indication: JOINT SWELLING

REACTIONS (3)
  - Mycobacterium avium complex infection [Unknown]
  - Arthritis bacterial [Not Recovered/Not Resolved]
  - Chondrocalcinosis pyrophosphate [Unknown]

NARRATIVE: CASE EVENT DATE: 20150529
